FAERS Safety Report 9763423 (Version 2)
Quarter: 2014Q1

REPORT INFORMATION
  Report Type: Report from Study
  Country: US (occurrence: US)
  Receive Date: 20131216
  Receipt Date: 20140115
  Transmission Date: 20141002
  Serious: Yes (Death)
  Sender: FDA-Public Use
  Company Number: PHEH2013US025749

PATIENT
  Sex: Male

DRUGS (1)
  1. TOBI [Suspect]
     Indication: CYSTIC FIBROSIS
     Dosage: 300 MG, TWICE A DAY, 2 WEEKS ON AND 2 WEEKS OFF
     Route: 055
     Dates: start: 20130325, end: 20130723

REACTIONS (2)
  - Cardiac failure congestive [Fatal]
  - Hepatic failure [Fatal]
